FAERS Safety Report 16828154 (Version 2)
Quarter: 2019Q3

REPORT INFORMATION
  Report Type: Spontaneous
  Country: US (occurrence: US)
  Receive Date: 20190919
  Receipt Date: 20190925
  Transmission Date: 20191005
  Serious: Yes (Other)
  Sender: FDA-Public Use
  Company Number: US-PFIZER INC-2019404783

PATIENT
  Age: 60 Year
  Sex: Male
  Weight: 59.41 kg

DRUGS (2)
  1. TIKOSYN [Suspect]
     Active Substance: DOFETILIDE
     Indication: ATRIAL FIBRILLATION
     Dosage: UNK
     Route: 048
  2. ALDACTONE [Concomitant]
     Active Substance: SPIRONOLACTONE
     Dosage: UNK, DAILY (0.5 TABLETS BY MOUTH DAILY)
     Route: 048

REACTIONS (6)
  - Cardiac failure chronic [Unknown]
  - Product use in unapproved indication [Unknown]
  - Electrocardiogram QT prolonged [Unknown]
  - Off label use [Unknown]
  - Dyspnoea [Unknown]
  - Dyspnoea paroxysmal nocturnal [Unknown]
